FAERS Safety Report 7490181-8 (Version None)
Quarter: 2011Q2

REPORT INFORMATION
  Report Type: 
  Country: None (occurrence: None)
  Receive Date: 20110519
  Receipt Date: 20110421
  Transmission Date: 20111010
  Serious: Yes (Hospitalization, Other)
  Sender: FDA-Public Use
  Company Number: US-BAYER-201029914NA

PATIENT
  Age: 24 Year
  Sex: Female
  Weight: 61.224 kg

DRUGS (5)
  1. YASMIN [Suspect]
     Indication: CONTRACEPTION
     Dosage: UNK UNK, QD
  2. CODEINE SULFATE [Concomitant]
  3. YAZ [Suspect]
     Indication: CONTRACEPTION
     Dosage: UNK UNK, QD
  4. PRENATAL VITAMINS [Concomitant]
     Dosage: UNK
     Dates: start: 20070101, end: 20080101
  5. FOLIC ACID [Concomitant]
     Dosage: UNK
     Dates: start: 20070101, end: 20080101

REACTIONS (2)
  - CHOLELITHIASIS [None]
  - CHOLECYSTITIS [None]
